FAERS Safety Report 7632888-5 (Version None)
Quarter: 2011Q3

REPORT INFORMATION
  Report Type: 
  Country: None (occurrence: None)
  Receive Date: 20110725
  Receipt Date: 20110713
  Transmission Date: 20111222
  Serious: Yes (Other)
  Sender: FDA-Public Use
  Company Number: JP-ROCHE-707940

PATIENT
  Sex: Female
  Weight: 71 kg

DRUGS (36)
  1. TOCILIZUMAB [Suspect]
     Route: 041
     Dates: start: 20090216, end: 20090216
  2. LOXOPROFEN SODIUM [Concomitant]
     Route: 048
  3. REMICADE [Suspect]
     Indication: RHEUMATOID ARTHRITIS
     Route: 041
     Dates: start: 20041007, end: 20080204
  4. TOCILIZUMAB [Suspect]
     Indication: RHEUMATOID ARTHRITIS
     Route: 041
     Dates: start: 20080728, end: 20080728
  5. TOCILIZUMAB [Suspect]
     Route: 041
     Dates: start: 20080825, end: 20080825
  6. LOXOPROFEN SODIUM [Concomitant]
     Dosage: FORM: PERORAL AGENT
     Route: 048
  7. ALFAROL [Concomitant]
     Route: 048
  8. ZOLPIDEM [Concomitant]
     Dosage: FORM:PERORAL AGENT.
     Route: 048
  9. PROCARBAZINE HYDROCHLORIDE [Concomitant]
     Dosage: FORM:PERORAL AGENT.
     Route: 048
     Dates: start: 20091114, end: 20091121
  10. AVELOX [Concomitant]
     Dosage: FORM:PERORAL AGENT.
     Route: 048
  11. TOCILIZUMAB [Suspect]
     Route: 041
     Dates: start: 20081020, end: 20081020
  12. TOCILIZUMAB [Suspect]
     Route: 041
     Dates: start: 20090119, end: 20090119
  13. TOCILIZUMAB [Suspect]
     Route: 041
     Dates: start: 20090316, end: 20090316
  14. TOCILIZUMAB [Suspect]
     Route: 041
     Dates: start: 20090413, end: 20090413
  15. TOCILIZUMAB [Suspect]
     Route: 041
     Dates: start: 20090608, end: 20090608
  16. LANSOPRAZOLE [Concomitant]
     Route: 048
     Dates: start: 20090906, end: 20091110
  17. METHOTREXATE [Suspect]
     Indication: RHEUMATOID ARTHRITIS
     Dosage: DRUG: RHEUMATREX
     Route: 048
     Dates: end: 20090801
  18. PREDNISOLONE [Concomitant]
     Route: 048
     Dates: start: 20090911
  19. FAMOTIDINE [Concomitant]
     Route: 048
  20. FLUCONAZOLE [Concomitant]
     Route: 048
     Dates: start: 20090911
  21. TOCILIZUMAB [Suspect]
     Dosage: DISCONTINUED.
     Route: 041
     Dates: start: 20090803, end: 20090803
  22. PREDNISOLONE [Concomitant]
     Route: 048
     Dates: start: 20080722, end: 20080825
  23. ALLOPURINOL [Concomitant]
     Route: 048
     Dates: start: 20090909
  24. MEROPENEM [Concomitant]
     Route: 042
     Dates: start: 20090901, end: 20090905
  25. TOCILIZUMAB [Suspect]
     Route: 041
     Dates: start: 20090511, end: 20090511
  26. TOCILIZUMAB [Suspect]
     Route: 041
     Dates: start: 20090706, end: 20090706
  27. PREDNISOLONE [Concomitant]
     Route: 048
     Dates: start: 20080526, end: 20080721
  28. SIMVASTATIN [Concomitant]
     Route: 048
  29. NAPROXEN [Concomitant]
     Dosage: FORM:PERORAL AGENT
     Route: 048
     Dates: start: 20090906
  30. NIZATIDINE [Concomitant]
     Dosage: FORM:PERORAL AGENT.
     Route: 048
     Dates: start: 20091111
  31. TOCILIZUMAB [Suspect]
     Route: 041
     Dates: start: 20080919, end: 20080919
  32. TOCILIZUMAB [Suspect]
     Route: 041
     Dates: start: 20081117, end: 20081117
  33. TOCILIZUMAB [Suspect]
     Route: 041
     Dates: start: 20081215, end: 20081215
  34. RISEDRONATE SODIUM [Concomitant]
     Route: 048
  35. FAMOTIDINE [Concomitant]
     Dosage: FORM:PERORAL AGENT.
     Route: 048
     Dates: end: 20090905
  36. SULFAMETHOXAZOLE [Concomitant]
     Dosage: FORM:PERORAL AGENT.
     Route: 048
     Dates: start: 20090911

REACTIONS (1)
  - HODGKIN'S DISEASE STAGE IV [None]
